FAERS Safety Report 5270442-3 (Version None)
Quarter: 2007Q1

REPORT INFORMATION
  Report Type: 
  Country: None (occurrence: None)
  Receive Date: 20070320
  Receipt Date: 20070308
  Transmission Date: 20070707
  Serious: Yes (Death)
  Sender: FDA-Public Use
  Company Number: FR-PFIZER INC-2007019394

PATIENT
  Sex: Female
  Weight: 65 kg

DRUGS (7)
  1. SUTENT [Suspect]
     Indication: METASTATIC RENAL CELL CARCINOMA
     Dosage: DAILY DOSE:50MG
     Route: 048
     Dates: start: 20070108, end: 20070203
  2. VALSARTAN AND HYDROCHLOROTHIAZIDE [Concomitant]
  3. KARDEGIC [Concomitant]
  4. AMLODIPINE [Concomitant]
  5. PRAVASTATIN [Concomitant]
  6. ZOLPIDEM TARTRATE [Concomitant]
  7. VENIRENE [Concomitant]

REACTIONS (1)
  - MYOCARDIAL INFARCTION [None]
